FAERS Safety Report 15687260 (Version 2)
Quarter: 2018Q4

REPORT INFORMATION
  Report Type: Report from Study
  Country: None (occurrence: SE)
  Receive Date: 20181204
  Receipt Date: 20181211
  Transmission Date: 20190205
  Serious: Yes (Hospitalization)
  Sender: FDA-Public Use
  Company Number: SE-ABBVIE-18S-150-2573433-00

PATIENT
  Sex: Male
  Weight: 65 kg

DRUGS (4)
  1. DUODOPA [Suspect]
     Active Substance: CARBIDOPA\LEVODOPA
     Route: 050
     Dates: start: 20170904, end: 20171002
  2. DUODOPA [Suspect]
     Active Substance: CARBIDOPA\LEVODOPA
     Dosage: EXTRA DOSE DECREASED TO 0.9 ML
     Route: 050
     Dates: start: 20181127
  3. DUODOPA [Suspect]
     Active Substance: CARBIDOPA\LEVODOPA
     Route: 050
     Dates: start: 20171002
  4. DUODOPA [Suspect]
     Active Substance: CARBIDOPA\LEVODOPA
     Indication: PARKINSON^S DISEASE
     Dosage: CURRENT DOSAGES: CD 2.4 ML/H ED: 3.9 ML MD 8 ML
     Route: 050

REACTIONS (11)
  - Weight decreased [Not Recovered/Not Resolved]
  - General physical health deterioration [Unknown]
  - Blood iron decreased [Not Recovered/Not Resolved]
  - Blood glucose increased [Unknown]
  - C-reactive protein increased [Unknown]
  - Dizziness postural [Not Recovered/Not Resolved]
  - Device expulsion [Recovered/Resolved]
  - Blood sodium decreased [Unknown]
  - Blood albumin decreased [Unknown]
  - Headache [Recovered/Resolved]
  - Incorrect dose administered [Recovered/Resolved]
